FAERS Safety Report 7963773-7 (Version None)
Quarter: 2011Q4

REPORT INFORMATION
  Report Type: 
  Country: None (occurrence: None)
  Receive Date: 20111208
  Receipt Date: 20111130
  Transmission Date: 20120403
  Serious: Yes (Other)
  Sender: FDA-Public Use
  Company Number: JP-BAYER-200912158BYL

PATIENT
  Age: 56 Year
  Sex: Male
  Weight: 72.4 kg

DRUGS (6)
  1. NEXAVAR [Suspect]
     Indication: RENAL CELL CARCINOMA
     Route: 048
     Dates: start: 20090406, end: 20090522
  2. MUCOSTA [Concomitant]
     Indication: GASTRITIS PROPHYLAXIS
     Dosage: 100 MG (DAILY DOSE), , ORAL
     Route: 048
     Dates: start: 20090309
  3. CARVEDILOL [Concomitant]
     Dosage: 20 MG (DAILY DOSE), , ORAL
     Route: 048
  4. NEXAVAR [Suspect]
     Dosage: 400 MG (DAILY DOSE), , ORAL
     Route: 048
     Dates: start: 20090713
  5. LOXONIN [Suspect]
     Indication: PRODUCT USED FOR UNKNOWN INDICATION
     Dosage: 60 MG (DAILY DOSE), , ORAL
     Route: 048
     Dates: start: 20090309
  6. NORVASC [Concomitant]
     Dosage: 5 MG (DAILY DOSE), , ORAL
     Route: 048

REACTIONS (4)
  - CHEILITIS [None]
  - PALMAR-PLANTAR ERYTHRODYSAESTHESIA SYNDROME [None]
  - HYPERTENSION [None]
  - HEPATIC FUNCTION ABNORMAL [None]
